FAERS Safety Report 4635261-7 (Version None)
Quarter: 2005Q2

REPORT INFORMATION
  Report Type: 
  Country: None (occurrence: None)
  Receive Date: 20050414
  Receipt Date: 20050405
  Transmission Date: 20051028
  Serious: Yes (Other)
  Sender: FDA-Public Use
  Company Number: PHBS2005CA04937

PATIENT
  Sex: Female

DRUGS (3)
  1. SANDOSTATIN [Suspect]
     Indication: DIARRHOEA
     Dosage: 100 UG, TID
     Route: 058
  2. SANDOSTATIN LAR [Suspect]
     Indication: DIARRHOEA
     Dosage: 30 MG, QMO
  3. CONTRACEPTIVES UNS [Concomitant]
     Route: 048

REACTIONS (11)
  - CHOLECYSTECTOMY [None]
  - DIARRHOEA [None]
  - FACIAL PAIN [None]
  - FEELING ABNORMAL [None]
  - GALLBLADDER DISORDER [None]
  - HEADACHE [None]
  - HYPOTRICHOSIS [None]
  - INTESTINAL OBSTRUCTION [None]
  - SWELLING [None]
  - TREMOR [None]
  - VISUAL DISTURBANCE [None]
